FAERS Safety Report 10434542 (Version 5)
Quarter: 2015Q2

REPORT INFORMATION
  Report Type: Report from Study
  Country: JP (occurrence: JP)
  Receive Date: 20140905
  Receipt Date: 20150511
  Transmission Date: 20150821
  Serious: Yes (Death, Life-Threatening)
  Sender: FDA-Public Use
  Company Number: JP-B.I. PHARMACEUTICALS,INC./RIDGEFIELD-2014-BI-41006NB

PATIENT
  Age: 65 Year
  Sex: Female
  Weight: 51 kg

DRUGS (6)
  1. GILOTRIF [Suspect]
     Active Substance: AFATINIB
     Indication: LUNG ADENOCARCINOMA
     Dosage: 40 MG
     Route: 065
     Dates: start: 20140819, end: 20140825
  2. MAXIPIME [Concomitant]
     Active Substance: CEFEPIME HYDROCHLORIDE
     Indication: PNEUMONIA
     Dosage: 2 G
     Route: 042
     Dates: start: 20140825, end: 20140826
  3. PREPENON [Concomitant]
     Active Substance: MORPHINE HYDROCHLORIDE
     Indication: PRODUCT USED FOR UNKNOWN INDICATION
     Dosage: 50 MG
     Route: 042
     Dates: start: 20140819
  4. DEXART [Concomitant]
     Active Substance: DEXAMETHASONE SODIUM PHOSPHATE
     Indication: PRODUCT USED FOR UNKNOWN INDICATION
     Dosage: 6.6 MG
     Route: 042
     Dates: start: 20140814, end: 20140826
  5. LUNESTA [Concomitant]
     Active Substance: ESZOPICLONE
     Indication: INSOMNIA
     Dosage: 1 MG
     Route: 048
     Dates: start: 20140816, end: 20140826
  6. TELEMINSOFT [Concomitant]
     Indication: CONSTIPATION
     Dosage: 10 MG
     Route: 054
     Dates: start: 20140814, end: 20140826

REACTIONS (4)
  - Haemoptysis [Not Recovered/Not Resolved]
  - Pneumonia [Not Recovered/Not Resolved]
  - Pulmonary oedema [Fatal]
  - Drug effect incomplete [Unknown]

NARRATIVE: CASE EVENT DATE: 201408
